FAERS Safety Report 5776750-1 (Version None)
Quarter: 2008Q2

REPORT INFORMATION
  Report Type: 
  Country: None (occurrence: None)
  Receive Date: 20080618
  Receipt Date: 20080218
  Transmission Date: 20081010
  Serious: No
  Sender: FDA-Public Use
  Company Number: US-ASTRAZENECA-2007UW24179

PATIENT
  Age: 69 Year
  Sex: Female
  Weight: 68.5 kg

DRUGS (2)
  1. SYMBICORT [Suspect]
     Indication: CHRONIC OBSTRUCTIVE PULMONARY DISEASE
     Dosage: 160/4.5 UG BID
     Route: 055
     Dates: start: 20070701
  2. METOPROLOL [Concomitant]

REACTIONS (2)
  - DYSPEPSIA [None]
  - DYSPNOEA [None]
